FAERS Safety Report 7970155-0 (Version None)
Quarter: 2011Q4

REPORT INFORMATION
  Report Type: 
  Country: None (occurrence: None)
  Receive Date: 20111212
  Receipt Date: 20111201
  Transmission Date: 20120403
  Serious: Yes (Other)
  Sender: FDA-Public Use
  Company Number: AU-JNJFOC-20110708625

PATIENT
  Sex: Female

DRUGS (5)
  1. REMICADE [Suspect]
     Indication: CROHN'S DISEASE
     Route: 042
     Dates: start: 20101126
  2. REMICADE [Suspect]
     Route: 042
     Dates: start: 20111014, end: 20111014
  3. METHOTREXATE [Concomitant]
  4. FOLIC ACID [Concomitant]
     Dosage: TWICE
  5. REMICADE [Suspect]
     Route: 042
     Dates: start: 20110624

REACTIONS (4)
  - ARTHRITIS INFECTIVE [None]
  - ABSCESS LIMB [None]
  - LUPUS-LIKE SYNDROME [None]
  - LOWER RESPIRATORY TRACT INFECTION [None]
